FAERS Safety Report 6069324-9 (Version None)
Quarter: 2009Q1

REPORT INFORMATION
  Report Type: 
  Country: None (occurrence: None)
  Receive Date: 20090206
  Receipt Date: 20090206
  Transmission Date: 20090719
  Serious: Yes (Other)
  Sender: FDA-Public Use
  Company Number: US-PFIZER INC-2008158729

PATIENT
  Sex: Female

DRUGS (2)
  1. CELEBREX [Suspect]
     Indication: PAIN
     Dates: start: 20080301, end: 20080501
  2. CELEBREX [Suspect]
     Indication: GUILLAIN-BARRE SYNDROME

REACTIONS (1)
  - CONVULSION [None]
